APPROVED DRUG PRODUCT: SEVELAMER HYDROCHLORIDE
Active Ingredient: SEVELAMER HYDROCHLORIDE
Strength: 400MG
Dosage Form/Route: TABLET;ORAL
Application: A204724 | Product #001 | TE Code: AB
Applicant: GLENMARK PHARMACEUTICALS LTD
Approved: Feb 8, 2019 | RLD: No | RS: No | Type: RX